FAERS Safety Report 16497174 (Version 1)
Quarter: 2019Q2

REPORT INFORMATION
  Report Type: Spontaneous
  Country: US (occurrence: US)
  Receive Date: 20190628
  Receipt Date: 20190628
  Transmission Date: 20190711
  Serious: No
  Sender: FDA-Public Use
  Company Number: US-SUNOVION-2019SUN002593

PATIENT
  Age: 12 Year
  Sex: Male

DRUGS (2)
  1. RISPERIDONE. [Concomitant]
     Active Substance: RISPERIDONE
  2. LATUDA [Suspect]
     Active Substance: LURASIDONE HYDROCHLORIDE
     Dosage: UNKNOWN
     Route: 048

REACTIONS (1)
  - Behaviour disorder [Unknown]
